FAERS Safety Report 12700880 (Version 1)
Quarter: 2016Q3

REPORT INFORMATION
  Report Type: Spontaneous
  Country: US (occurrence: None)
  Receive Date: 20160830
  Receipt Date: 20160830
  Transmission Date: 20161109
  Serious: Yes (Disabling, Other)
  Sender: FDA-Public Use
  Company Number: None

PATIENT
  Age: 83 Year
  Sex: Male
  Weight: 65.77 kg

DRUGS (12)
  1. COMFORT SHIELD BARRIER [Suspect]
     Active Substance: DIMETHICONE
  2. CITRUCEL [Concomitant]
     Active Substance: METHYLCELLULOSE (4000 MPA.S)
  3. MEDLINE PADS [Concomitant]
  4. TYLENOL [Concomitant]
     Active Substance: ACETAMINOPHEN
  5. FLUDROCORTISONE [Concomitant]
     Active Substance: FLUDROCORTISONE
  6. MULTIVITAMIN [Concomitant]
     Active Substance: VITAMINS
  7. WARFARIN [Concomitant]
     Active Substance: WARFARIN
  8. LATANOPROST. [Concomitant]
     Active Substance: LATANOPROST
  9. PLASTIC URINAL [Concomitant]
  10. CO-SPOT [Concomitant]
  11. CHERATUSSIN [Concomitant]
     Active Substance: AMMONIUM CHLORIDE\DEXTROMETHORPHAN\SODIUM CITRATE
  12. BOOST [Concomitant]
     Active Substance: DIETARY SUPPLEMENT

REACTIONS (5)
  - Scrotal oedema [None]
  - Cellulitis [None]
  - Scrotal erythema [None]
  - Product quality issue [None]
  - Scrotal pain [None]

NARRATIVE: CASE EVENT DATE: 20160720
